FAERS Safety Report 5392615-1 (Version None)
Quarter: 2007Q3

REPORT INFORMATION
  Report Type: 
  Country: None (occurrence: None)
  Receive Date: 20070720
  Receipt Date: 20070710
  Transmission Date: 20080115
  Serious: Yes (Hospitalization)
  Sender: FDA-Public Use
  Company Number: CG-MERCK-0707USA01840

PATIENT
  Age: 25 Year
  Sex: Female
  Weight: 50 kg

DRUGS (1)
  1. STROMECTOL [Suspect]
     Route: 048
     Dates: start: 20070421, end: 20070421

REACTIONS (7)
  - ASTHENIA [None]
  - DYSPNOEA [None]
  - FLAT AFFECT [None]
  - HEADACHE [None]
  - LOSS OF CONSCIOUSNESS [None]
  - MUSCLE TIGHTNESS [None]
  - PERIPHERAL COLDNESS [None]
